FAERS Safety Report 9037041 (Version 1)
Quarter: 2013Q1

REPORT INFORMATION
  Report Type: Report from Study
  Country: US (occurrence: US)
  Receive Date: 20130129
  Receipt Date: 20130129
  Transmission Date: 20140127
  Serious: No
  Sender: FDA-Public Use
  Company Number: US-ABBOTT-12P-163-0899472-00

PATIENT
  Age: 34 Year
  Sex: Female

DRUGS (7)
  1. HUMIRA 40 MG/0.8 ML PEN [Suspect]
     Indication: COLITIS ULCERATIVE
     Dates: start: 20111208
  2. PREDNISONE [Concomitant]
     Indication: COLITIS ULCERATIVE
  3. VSL 3 DS PROBIOTIC [Concomitant]
     Indication: COLITIS ULCERATIVE
     Dosage: DAILY
  4. SYNTHROID [Concomitant]
     Indication: HYPOTHYROIDISM
  5. MULTIVITAMIN OTC [Concomitant]
     Indication: VITAMIN SUPPLEMENTATION
  6. CALCIUM 500+D3 [Concomitant]
     Indication: MINERAL SUPPLEMENTATION
  7. VITAMIN D2 [Concomitant]
     Indication: VITAMIN SUPPLEMENTATION

REACTIONS (7)
  - Nasal oedema [Not Recovered/Not Resolved]
  - Rhinorrhoea [Not Recovered/Not Resolved]
  - Epistaxis [Unknown]
  - Inflammation [Unknown]
  - Sinusitis [Unknown]
  - Lymphadenopathy [Unknown]
  - Eye pruritus [Unknown]
